FAERS Safety Report 7292986-5 (Version None)
Quarter: 2011Q1

REPORT INFORMATION
  Report Type: 
  Country: None (occurrence: None)
  Receive Date: 20110215
  Receipt Date: 20110207
  Transmission Date: 20110831
  Serious: Yes (Hospitalization, Other)
  Sender: FDA-Public Use
  Company Number: US-ROCHE-709246

PATIENT
  Sex: Female
  Weight: 52.2 kg

DRUGS (2)
  1. ORTHO TRI-CYCLEN [Concomitant]
  2. ACCUTANE [Suspect]
     Indication: ACNE
     Route: 065
     Dates: start: 19981130, end: 19990401

REACTIONS (8)
  - DEPRESSION [None]
  - ANAL FISSURE [None]
  - INTESTINAL OBSTRUCTION [None]
  - CROHN'S DISEASE [None]
  - ATTENTION DEFICIT/HYPERACTIVITY DISORDER [None]
  - GASTROOESOPHAGEAL REFLUX DISEASE [None]
  - INFLAMMATORY BOWEL DISEASE [None]
  - COLITIS ULCERATIVE [None]
